FAERS Safety Report 19473706 (Version 1)
Quarter: 2021Q2

REPORT INFORMATION
  Report Type: Spontaneous
  Country: US (occurrence: US)
  Receive Date: 20210629
  Receipt Date: 20210629
  Transmission Date: 20210717
  Serious: No
  Sender: FDA-Public Use
  Company Number: US-GLAXOSMITHKLINE-2020224027

PATIENT
  Sex: Male
  Weight: 122.47 kg

DRUGS (3)
  1. ADVIL [Suspect]
     Active Substance: IBUPROFEN
     Indication: OROPHARYNGEAL PAIN
     Dosage: 400 MG, EVERY 6 HOURS
  2. PENICILLIN [BENZYLPENICILLIN] [Concomitant]
     Active Substance: PENICILLIN G
     Indication: PHARYNGITIS STREPTOCOCCAL
     Dosage: PRESCRIBED TO TAKE FOR 10 DAYS
     Dates: start: 20200605
  3. ADVIL [Suspect]
     Active Substance: IBUPROFEN
     Dosage: 600 MG

REACTIONS (4)
  - Poor quality product administered [Unknown]
  - Intentional product misuse [Unknown]
  - Product coating issue [Unknown]
  - Product physical issue [Unknown]
